FAERS Safety Report 4661749-9 (Version None)
Quarter: 2005Q2

REPORT INFORMATION
  Report Type: 
  Country: None (occurrence: None)
  Receive Date: 20050513
  Receipt Date: 20050504
  Transmission Date: 20051028
  Serious: Yes (Hospitalization)
  Sender: FDA-Public Use
  Company Number: FR-ROCHE-404102

PATIENT
  Age: 62 Year
  Sex: Female
  Weight: 49 kg

DRUGS (5)
  1. RIVOTRIL [Suspect]
     Route: 048
     Dates: start: 20050319, end: 20050325
  2. RIVOTRIL [Suspect]
     Route: 048
     Dates: start: 20050326, end: 20050329
  3. SKENAN [Suspect]
     Route: 048
     Dates: start: 20050319, end: 20050325
  4. SKENAN [Suspect]
     Route: 048
     Dates: start: 20050326, end: 20050329
  5. MYOLASTAN [Suspect]
     Indication: DRUG USE FOR UNKNOWN INDICATION
     Route: 048
     Dates: start: 20050326, end: 20050329

REACTIONS (5)
  - AGITATION [None]
  - CONFUSIONAL STATE [None]
  - DELIRIUM [None]
  - PERSECUTORY DELUSION [None]
  - SOMNOLENCE [None]
